FAERS Safety Report 20741919 (Version 1)
Quarter: 2022Q2

REPORT INFORMATION
  Report Type: Spontaneous
  Country: DE (occurrence: DE)
  Receive Date: 20220423
  Receipt Date: 20220423
  Transmission Date: 20220721
  Serious: Yes (Death)
  Sender: FDA-Public Use
  Company Number: DE-NOVARTISPH-NVSC2022DE094185

PATIENT
  Sex: Male

DRUGS (1)
  1. AZOPT [Suspect]
     Active Substance: BRINZOLAMIDE
     Indication: Glaucoma
     Dosage: UNK
     Route: 065

REACTIONS (2)
  - Death [Fatal]
  - Eye colour change [Unknown]

NARRATIVE: CASE EVENT DATE: 20190101
